FAERS Safety Report 12816497 (Version 1)
Quarter: 2016Q4

REPORT INFORMATION
  Report Type: Spontaneous
  Country: US (occurrence: US)
  Receive Date: 20161005
  Receipt Date: 20161005
  Transmission Date: 20170207
  Serious: No
  Sender: FDA-Public Use
  Company Number: US-AMGEN-USASP2015103551

PATIENT
  Age: 75 Year
  Sex: Female

DRUGS (5)
  1. FOSAMAX [Concomitant]
     Active Substance: ALENDRONATE SODIUM
  2. PROLIA [Suspect]
     Active Substance: DENOSUMAB
     Indication: PRODUCT USED FOR UNKNOWN INDICATION
     Dosage: UNK
     Route: 065
     Dates: start: 20150820
  3. TEMAZEPAM ACTAVIS [Concomitant]
  4. XANAX [Concomitant]
     Active Substance: ALPRAZOLAM
  5. VITAMINS                           /00067501/ [Concomitant]
     Active Substance: VITAMINS

REACTIONS (4)
  - Myalgia [Unknown]
  - Insomnia [Unknown]
  - Back pain [Unknown]
  - Spinal pain [Unknown]

NARRATIVE: CASE EVENT DATE: 201508
